FAERS Safety Report 13339492 (Version 1)
Quarter: 2017Q1

REPORT INFORMATION
  Report Type: Spontaneous
  Country: BR (occurrence: BR)
  Receive Date: 20170315
  Receipt Date: 20170315
  Transmission Date: 20170428
  Serious: Yes (Hospitalization)
  Sender: FDA-Public Use
  Company Number: BR-ELI_LILLY_AND_COMPANY-BR201702008383

PATIENT
  Age: 10 Year
  Sex: Female

DRUGS (3)
  1. HUMULIN N [Suspect]
     Active Substance: INSULIN HUMAN
     Dosage: 14 IU, AT LUNCH
     Route: 058
     Dates: start: 20160203
  2. HUMULIN N [Suspect]
     Active Substance: INSULIN HUMAN
     Indication: PRODUCT USED FOR UNKNOWN INDICATION
     Dosage: 20 IU, EACH MORNING
     Route: 058
     Dates: start: 20160203
  3. HUMULIN N [Suspect]
     Active Substance: INSULIN HUMAN
     Dosage: 16 IU, AT DINNER
     Route: 058
     Dates: start: 20160203

REACTIONS (2)
  - Hyperglycaemia [Recovered/Resolved]
  - Drug ineffective [Unknown]
